FAERS Safety Report 4419889-5 (Version None)
Quarter: 2004Q3

REPORT INFORMATION
  Report Type: 
  Country: None (occurrence: None)
  Receive Date: 20040804
  Receipt Date: 20040713
  Transmission Date: 20050211
  Serious: Yes (Death)
  Sender: FDA-Public Use
  Company Number: DE_040713949

PATIENT
  Age: 43 Year
  Sex: Female

DRUGS (4)
  1. ZYPREXA [Suspect]
     Indication: ACUTE PSYCHOSIS
     Dosage: 10 MG/1 DAY
     Dates: start: 20040709
  2. ZYPREXA [Suspect]
     Indication: AGITATION
     Dosage: 10 MG/1 DAY
     Dates: start: 20040709
  3. ZYPREXA [Suspect]
     Indication: SCHIZOPHRENIA
     Dosage: 10 MG/1 DAY
     Dates: start: 20040709
  4. HALDOL-JANSSEN DECANOAT (HALOPERIDOL DECANOATE) [Concomitant]

REACTIONS (1)
  - CIRCULATORY COLLAPSE [None]
